FAERS Safety Report 23624139 (Version 1)
Quarter: 2024Q1

REPORT INFORMATION
  Report Type: Spontaneous
  Country: US (occurrence: US)
  Receive Date: 20240312
  Receipt Date: 20240312
  Transmission Date: 20240410
  Serious: Yes (Congenital Anomaly)
  Sender: FDA-Public Use
  Company Number: US-ABBVIE-5670275

PATIENT
  Age: 0 Year
  Sex: Female

DRUGS (4)
  1. BOTOX [Suspect]
     Active Substance: ONABOTULINUMTOXINA
     Indication: Foetal exposure during pregnancy
     Dosage: TIME INTERVAL: AS NECESSARY
     Route: 064
  2. BOTOX [Suspect]
     Active Substance: ONABOTULINUMTOXINA
     Indication: Foetal exposure during pregnancy
     Dosage: TIME INTERVAL: AS NECESSARY
     Route: 063
  3. RIZATRIPTAN [Suspect]
     Active Substance: RIZATRIPTAN
     Indication: Foetal exposure during pregnancy
     Route: 064
  4. NAPROXEN [Suspect]
     Active Substance: NAPROXEN
     Indication: Foetal exposure during pregnancy
     Route: 064

REACTIONS (6)
  - Haemangioma of skin [Recovering/Resolving]
  - Foetal exposure during pregnancy [Unknown]
  - Congenital tricuspid valve incompetence [Recovering/Resolving]
  - Atrial septal defect [Recovering/Resolving]
  - Congenital coronary artery malformation [Recovering/Resolving]
  - Exposure via breast milk [Unknown]

NARRATIVE: CASE EVENT DATE: 20230220
